FAERS Safety Report 24643067 (Version 2)
Quarter: 2024Q4

REPORT INFORMATION
  Report Type: Spontaneous
  Country: CN (occurrence: CN)
  Receive Date: 20241120
  Receipt Date: 20241127
  Transmission Date: 20250115
  Serious: Yes (Hospitalization)
  Sender: PFIZER
  Company Number: CN-PFIZER INC-PV202400148427

PATIENT
  Age: 59 Year
  Sex: Female
  Weight: 64 kg

DRUGS (4)
  1. PACLITAXEL [Suspect]
     Active Substance: PACLITAXEL
     Indication: Cervix carcinoma
     Dosage: 287 MG, 1X/DAY
     Route: 041
     Dates: start: 20240821, end: 20240821
  2. CISPLATIN [Suspect]
     Active Substance: CISPLATIN
     Indication: Cervix carcinoma
     Dosage: 123 MG, 1X/DAY
     Route: 041
     Dates: start: 20240821, end: 20240821
  3. DEXTROSE [Concomitant]
     Active Substance: DEXTROSE MONOHYDRATE
     Indication: Vehicle solution use
     Dosage: 500 ML
     Dates: start: 20240821, end: 20240821
  4. SODIUM CHLORIDE [Concomitant]
     Active Substance: SODIUM CHLORIDE
     Indication: Vehicle solution use
     Dosage: 500 ML
     Dates: start: 20240821, end: 20240821

REACTIONS (3)
  - Urinary tract infection [Recovering/Resolving]
  - Nephropathy toxic [Unknown]
  - Off label use [Unknown]

NARRATIVE: CASE EVENT DATE: 20240822
